FAERS Safety Report 9779417 (Version 2)
Quarter: 2013Q4

REPORT INFORMATION
  Report Type: Spontaneous
  Country: US (occurrence: US)
  Receive Date: 20131223
  Receipt Date: 20131231
  Transmission Date: 20140711
  Serious: Yes (Congenital Anomaly, Other)
  Sender: FDA-Public Use
  Company Number: US-PFIZER INC-2013363887

PATIENT
  Sex: Male

DRUGS (11)
  1. ZOLOFT [Suspect]
     Dosage: UNK
     Route: 064
     Dates: start: 20090110, end: 20090228
  2. ZOLOFT [Suspect]
     Dosage: UNK
     Route: 064
     Dates: start: 20090414, end: 20100106
  3. SERTRALINE HCL [Suspect]
     Dosage: UNK
     Route: 064
     Dates: start: 20090110, end: 20090228
  4. SERTRALINE HCL [Suspect]
     Dosage: UNK
     Route: 064
     Dates: start: 20090414, end: 20100106
  5. ZOLPIDEM [Concomitant]
     Dosage: UNK
     Route: 064
  6. PROMETHAZINE [Concomitant]
     Dosage: UNK
     Route: 064
  7. ONDANSETRON [Concomitant]
     Dosage: UNK
     Route: 064
  8. AMBIEN [Concomitant]
     Dosage: UNK
     Route: 064
  9. AZITHROMYCIN [Concomitant]
     Dosage: UNK
     Route: 064
  10. METRONIDAZOLE [Concomitant]
     Dosage: UNK
     Route: 064
  11. PRENATAL VITAMINS [Concomitant]
     Dosage: UNK
     Route: 064

REACTIONS (12)
  - Maternal exposure during pregnancy [Unknown]
  - Oculoauriculovertebral dysplasia [Unknown]
  - VACTERL syndrome [Unknown]
  - Oesophageal atresia [Unknown]
  - Cleft lip [Unknown]
  - Ear malformation [Unknown]
  - Tracheo-oesophageal fistula [Unknown]
  - Congenital scoliosis [Unknown]
  - Deafness [Unknown]
  - Hydronephrosis [Unknown]
  - Premature baby [Unknown]
  - Developmental delay [Unknown]
